FAERS Safety Report 25588431 (Version 2)
Quarter: 2025Q3

REPORT INFORMATION
  Report Type: Report from Study
  Country: CO (occurrence: CO)
  Receive Date: 20250722
  Receipt Date: 20250728
  Transmission Date: 20251021
  Serious: Yes (Hospitalization)
  Sender: SANOFI AVENTIS
  Company Number: CO-SA-2025SA166867

PATIENT
  Age: 14 Year
  Sex: Male
  Weight: 57 kg

DRUGS (2)
  1. DUPILUMAB [Suspect]
     Active Substance: DUPILUMAB
     Indication: Dermatitis atopic
     Dosage: 200 MG, QOW
     Route: 058
     Dates: start: 20231128, end: 2025
  2. DUPILUMAB [Suspect]
     Active Substance: DUPILUMAB
     Dosage: 300 MG, QOW
     Route: 058
     Dates: start: 20250609

REACTIONS (22)
  - Rebound atopic dermatitis [Recovering/Resolving]
  - Skin discolouration [Not Recovered/Not Resolved]
  - Pyrexia [Recovered/Resolved]
  - Vomiting [Recovered/Resolved]
  - Rash pruritic [Unknown]
  - Inflammation [Recovered/Resolved]
  - Discomfort [Unknown]
  - Malaise [Recovered/Resolved]
  - Cough [Recovering/Resolving]
  - Lip dry [Recovering/Resolving]
  - Chapped lips [Recovering/Resolving]
  - Genital injury [Unknown]
  - Dry skin [Recovering/Resolving]
  - Pruritus [Unknown]
  - Headache [Recovered/Resolved]
  - Erythema [Not Recovered/Not Resolved]
  - Dry eye [Recovering/Resolving]
  - Conjunctivitis [Recovered/Resolved]
  - Arthralgia [Recovered/Resolved]
  - Rash [Unknown]
  - Off label use [Unknown]
  - Hypersensitivity [Recovering/Resolving]

NARRATIVE: CASE EVENT DATE: 20250101
